FAERS Safety Report 24253904 (Version 1)
Quarter: 2024Q3

REPORT INFORMATION
  Report Type: Spontaneous
  Country: JP (occurrence: JP)
  Receive Date: 20240827
  Receipt Date: 20240827
  Transmission Date: 20241017
  Serious: Yes (Other)
  Sender: PFIZER
  Company Number: JP-PFIZER INC-PV202300164423

PATIENT
  Age: 75 Year
  Sex: Female
  Weight: 46 kg

DRUGS (8)
  1. INLYTA [Interacting]
     Active Substance: AXITINIB
     Indication: Renal cancer
     Dosage: 10 MG, DAILY
     Dates: start: 202211
  2. INLYTA [Interacting]
     Active Substance: AXITINIB
     Dosage: 5 MG, DAILY
     Dates: end: 20230725
  3. FLUCONAZOLE [Interacting]
     Active Substance: FLUCONAZOLE
  4. PEMBROLIZUMAB [Suspect]
     Active Substance: PEMBROLIZUMAB
     Indication: Renal cancer
     Dosage: 200 MG, EVERY 3 WEEKS
     Dates: start: 202211
  5. PEMBROLIZUMAB [Suspect]
     Active Substance: PEMBROLIZUMAB
     Dosage: 400 MG, EVERY 6 WEEKS
     Dates: start: 202304
  6. PREDNISOLONE [Interacting]
     Active Substance: PREDNISOLONE
     Indication: Lymphoma
     Dosage: 5 MG, DAILY
  7. PREDNISOLONE [Interacting]
     Active Substance: PREDNISOLONE
     Dosage: 35 MG, DAILY(0.8 MG/KG/DAY)
  8. VONOPRAZAN FUMARATE [Interacting]
     Active Substance: VONOPRAZAN FUMARATE
     Indication: Lymphoma

REACTIONS (4)
  - Platelet count decreased [Recovered/Resolved]
  - Immune-mediated gastritis [Recovering/Resolving]
  - Drug interaction [Unknown]
  - Drug level increased [Unknown]

NARRATIVE: CASE EVENT DATE: 20230101
